FAERS Safety Report 18445567 (Version 1)
Quarter: 2020Q4

REPORT INFORMATION
  Report Type: Spontaneous
  Country: US (occurrence: US)
  Receive Date: 20201029
  Receipt Date: 20201029
  Transmission Date: 20210114
  Serious: Yes (Life-Threatening)
  Sender: FDA-Public Use
  Company Number: None

PATIENT
  Age: 33 Year
  Sex: Male
  Weight: 82.35 kg

DRUGS (5)
  1. VITAMIN D [Concomitant]
     Active Substance: VITAMIN D NOS
  2. AFREZZA [Suspect]
     Active Substance: INSULIN HUMAN
     Indication: TYPE 1 DIABETES MELLITUS
     Dosage: ?          OTHER STRENGTH:UNITS;QUANTITY:1 INHALATION(S);?
     Route: 055
  3. TOUJEO [Concomitant]
     Active Substance: INSULIN GLARGINE
  4. DEXCOM G6 CGM [Concomitant]
     Active Substance: DEVICE
  5. SYNTHROID [Concomitant]
     Active Substance: LEVOTHYROXINE SODIUM

REACTIONS (3)
  - Blood glucose decreased [None]
  - Incorrect dose administered [None]
  - Product appearance confusion [None]

NARRATIVE: CASE EVENT DATE: 20201029
